FAERS Safety Report 16643443 (Version 6)
Quarter: 2019Q4

REPORT INFORMATION
  Report Type: Spontaneous
  Country: US (occurrence: US)
  Receive Date: 20190729
  Receipt Date: 20191031
  Transmission Date: 20200122
  Serious: No
  Sender: FDA-Public Use
  Company Number: US-TAKEDA-2019TUS045428

PATIENT
  Sex: Male

DRUGS (7)
  1. NINLARO [Suspect]
     Active Substance: IXAZOMIB CITRATE
     Indication: PLASMA CELL MYELOMA
     Dosage: 3 MILLIGRAM, 1/WEEK
     Route: 048
     Dates: start: 20060306
  2. ASPIRIN. [Concomitant]
     Active Substance: ASPIRIN
     Dosage: UNK
     Route: 065
  3. NINLARO [Suspect]
     Active Substance: IXAZOMIB CITRATE
     Dosage: 4 MILLIGRAM
     Route: 048
     Dates: start: 20180307
  4. NINLARO [Suspect]
     Active Substance: IXAZOMIB CITRATE
     Dosage: 3 MILLIGRAM
     Route: 048
     Dates: start: 20180423
  5. REVLIMID [Suspect]
     Active Substance: LENALIDOMIDE
     Dosage: 10 MILLIGRAM
     Route: 048
     Dates: start: 20180306
  6. REVLIMID [Suspect]
     Active Substance: LENALIDOMIDE
     Indication: PLASMA CELL MYELOMA
     Dosage: 25 MILLIGRAM, QD
     Route: 048
     Dates: start: 201706
  7. DEXAMETHASONE. [Suspect]
     Active Substance: DEXAMETHASONE
     Indication: PRODUCT USED FOR UNKNOWN INDICATION
     Dosage: UNK
     Route: 065

REACTIONS (2)
  - Platelet count decreased [Unknown]
  - Cytopenia [Not Recovered/Not Resolved]
